FAERS Safety Report 23593878 (Version 1)
Quarter: 2024Q1

REPORT INFORMATION
  Report Type: Spontaneous
  Country: IT (occurrence: IT)
  Receive Date: 20240305
  Receipt Date: 20240305
  Transmission Date: 20240410
  Serious: Yes (Hospitalization, Other)
  Sender: FDA-Public Use
  Company Number: IT-ROCHE-3509562

PATIENT
  Age: 58 Year
  Sex: Female
  Weight: 110 kg

DRUGS (16)
  1. XGEVA [Suspect]
     Active Substance: DENOSUMAB
     Indication: Product used for unknown indication
     Dosage: UNK
     Route: 065
     Dates: start: 20200317
  2. FEMARA [Suspect]
     Active Substance: LETROZOLE
     Indication: HER2 positive breast cancer
     Dosage: 2.5 MILLIGRAM, QD
     Route: 048
     Dates: start: 20190415
  3. KADCYLA [Suspect]
     Active Substance: ADO-TRASTUZUMAB EMTANSINE
     Indication: HER2 positive breast cancer
     Dosage: 288 MILLIGRAM, Q3WK
     Route: 040
     Dates: start: 20200218, end: 20230418
  4. HERCEPTIN [Suspect]
     Active Substance: TRASTUZUMAB
     Indication: HER2 positive breast cancer
     Dosage: 480 MILLIGRAM, Q3WK (MOST RECENT DOSE PRIOR TO THE EVENT: 14/JUL/2017)
     Route: 040
     Dates: start: 20170713, end: 20200123
  5. PERJETA [Suspect]
     Active Substance: PERTUZUMAB
     Indication: HER2 positive breast cancer
     Dosage: 840 MILLIGRAM, Q3WK (MOST RECENT DOSE PRIOR TO THE EVENT: 3/AUG/2018)
     Route: 040
     Dates: start: 20170713, end: 20170713
  6. TAXOTERE [Suspect]
     Active Substance: DOCETAXEL
     Indication: HER2 positive breast cancer
     Dosage: 150 MILLIGRAM, Q3WK
     Route: 040
     Dates: start: 20170714, end: 20171005
  7. ERYTHROPOIETIN [Concomitant]
     Active Substance: ERYTHROPOIETIN
     Dosage: UNK
     Dates: start: 20230605
  8. OSELTAMIVIR [Concomitant]
     Active Substance: OSELTAMIVIR
     Indication: Interstitial lung disease
     Dosage: UNK
     Dates: end: 20240115
  9. CHOLECALCIFEROL [Concomitant]
     Active Substance: CHOLECALCIFEROL
     Dosage: UNK
     Dates: start: 20230228
  10. TAZOBACTAM [Concomitant]
     Active Substance: TAZOBACTAM
     Indication: Interstitial lung disease
     Dosage: UNK
     Dates: end: 20240115
  11. RAMIPRIL [Concomitant]
     Active Substance: RAMIPRIL
     Dosage: UNK
     Dates: start: 20200219
  12. PIPERACILLIN SODIUM [Concomitant]
     Active Substance: PIPERACILLIN SODIUM
     Indication: Interstitial lung disease
     Dosage: UNK
     Dates: end: 20240115
  13. VANCOMYCIN [Concomitant]
     Active Substance: VANCOMYCIN
     Indication: Interstitial lung disease
     Dosage: UNK
     Dates: end: 20240115
  14. Dobetin [Concomitant]
     Dosage: UNK
     Dates: start: 20230228
  15. IBUPROFEN [Concomitant]
     Active Substance: IBUPROFEN
     Dosage: UNK
     Dates: start: 20220614
  16. PANTOPRAZOLE SODIUM [Concomitant]
     Active Substance: PANTOPRAZOLE SODIUM
     Dosage: UNK
     Dates: start: 20210914

REACTIONS (1)
  - Cholecystitis acute [Not Recovered/Not Resolved]

NARRATIVE: CASE EVENT DATE: 20231228
